FAERS Safety Report 9803573 (Version 1)
Quarter: 2014Q1

REPORT INFORMATION
  Report Type: Spontaneous
  Country: US (occurrence: US)
  Receive Date: 20140108
  Receipt Date: 20140108
  Transmission Date: 20141002
  Serious: No
  Sender: FDA-Public Use
  Company Number: US-GLAXOSMITHKLINE-A1008712A

PATIENT
  Age: 60 Year
  Sex: Male

DRUGS (2)
  1. LOVAZA [Suspect]
     Indication: PRODUCT USED FOR UNKNOWN INDICATION
     Dosage: 2CAP PER DAY
     Route: 048
     Dates: start: 201212
  2. VITAMIN D [Concomitant]

REACTIONS (2)
  - Peripheral coldness [Recovered/Resolved]
  - Paraesthesia [Recovered/Resolved]
